FAERS Safety Report 5152312-4 (Version None)
Quarter: 2006Q4

REPORT INFORMATION
  Report Type: 
  Country: None (occurrence: None)
  Receive Date: 20061116
  Receipt Date: 20061107
  Transmission Date: 20070319
  Serious: Yes (Death)
  Sender: FDA-Public Use
  Company Number: DE-ROCHE-470217

PATIENT
  Sex: Male

DRUGS (1)
  1. ROACCUTAN [Suspect]
     Dosage: DOSAGE REPORTED AS HIGH DOSES.
     Route: 065
     Dates: start: 20010615

REACTIONS (4)
  - BONE NEOPLASM [None]
  - BRAIN NEOPLASM [None]
  - NEOPLASM [None]
  - NEOPLASM SKIN [None]
